FAERS Safety Report 7278696-9 (Version None)
Quarter: 2011Q1

REPORT INFORMATION
  Report Type: 
  Country: None (occurrence: None)
  Receive Date: 20110207
  Receipt Date: 20110125
  Transmission Date: 20110831
  Serious: Yes (Hospitalization)
  Sender: FDA-Public Use
  Company Number: PHHY2011GB07244

PATIENT
  Age: 69 Year
  Sex: Female

DRUGS (5)
  1. PROCYCLIDINE [Concomitant]
     Dosage: 10 MG, ONCE/SINGLE
  2. RISPERIDONE [Suspect]
     Dosage: 4 MG/DAY
  3. LOFEPRAMINE [Concomitant]
     Dosage: 70 MG, ONCE/SINGLE AT NIGHT
  4. VALPROATE SODIUM [Concomitant]
     Dosage: 1 G, ONCE/SINGLE
  5. IBUPROFEN [Concomitant]
     Dosage: 800 MG, ONCE/SINGLE AT NIGHT

REACTIONS (14)
  - BLOOD PRESSURE DECREASED [None]
  - RASH [None]
  - BLISTER [None]
  - HEART RATE INCREASED [None]
  - RENAL IMPAIRMENT [None]
  - ATRIAL FLUTTER [None]
  - PALPITATIONS [None]
  - BACTERIAL INFECTION [None]
  - MALAISE [None]
  - PHOTOSENSITIVITY REACTION [None]
  - RASH ERYTHEMATOUS [None]
  - EXFOLIATIVE RASH [None]
  - BODY TEMPERATURE DECREASED [None]
  - TOXICITY TO VARIOUS AGENTS [None]
